FAERS Safety Report 13848632 (Version 1)
Quarter: 2017Q3

REPORT INFORMATION
  Report Type: Spontaneous
  Country: US (occurrence: US)
  Receive Date: 20170809
  Receipt Date: 20170809
  Transmission Date: 20171127
  Serious: No
  Sender: FDA-Public Use
  Company Number: None

PATIENT
  Age: 9 Month
  Sex: Female
  Weight: 7.72 kg

DRUGS (1)
  1. PREDNISOLONE. [Suspect]
     Active Substance: PREDNISOLONE

REACTIONS (5)
  - Heart rate increased [None]
  - Incorrect dose administered [None]
  - Drug prescribing error [None]
  - Psychomotor hyperactivity [None]
  - Drug dispensing error [None]

NARRATIVE: CASE EVENT DATE: 2017
